FAERS Safety Report 4947842-1 (Version None)
Quarter: 2006Q1

REPORT INFORMATION
  Report Type: 
  Country: None (occurrence: None)
  Receive Date: 20060320
  Receipt Date: 20060309
  Transmission Date: 20060701
  Serious: Yes (Other)
  Sender: FDA-Public Use
  Company Number: US-AVENTIS-200612447US

PATIENT
  Sex: Female

DRUGS (8)
  1. NASACORT AQ [Suspect]
     Indication: POSTNASAL DRIP
     Dosage: DOSE: 2 PUFFS IN EACH NOSTRIL
     Route: 055
     Dates: start: 20060101, end: 20060201
  2. NASACORT AQ [Suspect]
     Indication: RHINORRHOEA
     Dosage: DOSE: 2 PUFFS IN EACH NOSTRIL
     Route: 055
     Dates: start: 20060101, end: 20060201
  3. TUSSIN [Suspect]
     Dosage: DOSE: UNK
  4. ZITHROMAX [Suspect]
     Dosage: DOSE: UNK
  5. TOPROL-XL [Concomitant]
     Dosage: DOSE: UNK
  6. HORMONES AND RELATED AGENTS [Concomitant]
     Dosage: DOSE: UNK
  7. VALIUM [Concomitant]
     Dosage: DOSE: UNK
  8. ANALGESICS [Concomitant]
     Dosage: DOSE: UNK

REACTIONS (5)
  - COUGH [None]
  - PNEUMONIA [None]
  - PRODUCTIVE COUGH [None]
  - RIB FRACTURE [None]
  - UPPER RESPIRATORY TRACT INFECTION [None]
